FAERS Safety Report 9561197 (Version 2)
Quarter: 2013Q3

REPORT INFORMATION
  Report Type: Spontaneous
  Country: PH (occurrence: PH)
  Receive Date: 20130927
  Receipt Date: 20130927
  Transmission Date: 20140515
  Serious: Yes (Other)
  Sender: FDA-Public Use
  Company Number: PH-B.I. PHARMACEUTICALS,INC./RIDGEFIELD-2013-BI-18832GL

PATIENT
  Age: 84 Year
  Sex: Female

DRUGS (2)
  1. TELMISARTAN [Suspect]
     Indication: HYPERTENSION
     Dosage: 80 MG
     Route: 065
     Dates: start: 20130601, end: 20130608
  2. ACETYLCYSTEINE [Concomitant]
     Dosage: DAILY DOSE: 1 SACHET
     Dates: start: 20130601

REACTIONS (7)
  - Type 2 diabetes mellitus [Recovered/Resolved]
  - Blister [Recovered/Resolved]
  - Pruritus [Recovered/Resolved]
  - Scratch [Recovered/Resolved]
  - Scab [Recovered/Resolved]
  - Rash pruritic [Recovered/Resolved]
  - Dry skin [Recovered/Resolved]
